FAERS Safety Report 9759644 (Version 3)
Quarter: 2015Q3

REPORT INFORMATION
  Report Type: Spontaneous
  Country: US (occurrence: US)
  Receive Date: 20131216
  Receipt Date: 20150805
  Transmission Date: 20151125
  Serious: No
  Sender: FDA-Public Use
  Company Number: US-GILEAD-2010-0028098

PATIENT
  Age: 54 Year
  Sex: Female
  Weight: 92.08 kg

DRUGS (6)
  1. LITHIUM. [Concomitant]
     Active Substance: LITHIUM
  2. ZYPREXA [Concomitant]
     Active Substance: OLANZAPINE
  3. BUPROPION. [Concomitant]
     Active Substance: BUPROPION
  4. LETAIRIS [Suspect]
     Active Substance: AMBRISENTAN
     Indication: PULMONARY ARTERIAL HYPERTENSION
     Route: 048
     Dates: start: 20091106
  5. SINGULAIR [Concomitant]
     Active Substance: MONTELUKAST SODIUM
  6. NEFAZODONE [Concomitant]
     Active Substance: NEFAZODONE

REACTIONS (1)
  - Blood creatinine increased [Unknown]
